FAERS Safety Report 23022385 (Version 2)
Quarter: 2023Q4

REPORT INFORMATION
  Report Type: Report from Study
  Country: PL (occurrence: PL)
  Receive Date: 20231003
  Receipt Date: 20231017
  Transmission Date: 20240110
  Serious: Yes (Other)
  Sender: FDA-Public Use
  Company Number: PL-PFIZER INC-PV202300159834

PATIENT
  Age: 48 Year
  Sex: Female
  Weight: 57 kg

DRUGS (4)
  1. RIMEGEPANT [Suspect]
     Active Substance: RIMEGEPANT
     Indication: Migraine
     Dosage: UNK, 1X/DAY
     Route: 048
     Dates: start: 20230613, end: 20230912
  2. RIMEGEPANT [Suspect]
     Active Substance: RIMEGEPANT
     Dosage: UNK, 1X/DAY
     Dates: start: 20230913, end: 20230918
  3. ATORVASTATIN CALCIUM [Suspect]
     Active Substance: ATORVASTATIN CALCIUM
     Indication: Artery dissection
     Dosage: 40 MG, QD
     Route: 048
     Dates: start: 202306, end: 20230919
  4. ASPIRIN [Concomitant]
     Active Substance: ASPIRIN
     Indication: Artery dissection
     Dosage: 75 MG, QD
     Route: 048
     Dates: start: 202306

REACTIONS (1)
  - Liver function test abnormal [Not Recovered/Not Resolved]

NARRATIVE: CASE EVENT DATE: 20230919
